FAERS Safety Report 20527260 (Version 1)
Quarter: 2022Q1

REPORT INFORMATION
  Report Type: Spontaneous
  Country: US (occurrence: None)
  Receive Date: 20220228
  Receipt Date: 20220228
  Transmission Date: 20220424
  Serious: No
  Sender: FDA-Public Use
  Company Number: None

PATIENT
  Age: 55 Year
  Sex: Female
  Weight: 78.93 kg

DRUGS (1)
  1. PROGESTERONE [Suspect]
     Active Substance: PROGESTERONE
     Indication: Insomnia
     Dosage: 100 MG DAILY ORAL?
     Route: 048
     Dates: start: 20200520, end: 20200720

REACTIONS (3)
  - Product substitution issue [None]
  - Rash [None]
  - Rash [None]

NARRATIVE: CASE EVENT DATE: 20200716
